FAERS Safety Report 7483005-6 (Version None)
Quarter: 2011Q2

REPORT INFORMATION
  Report Type: 
  Country: None (occurrence: None)
  Receive Date: 20110516
  Receipt Date: 20110413
  Transmission Date: 20111010
  Serious: No
  Sender: FDA-Public Use
  Company Number: US-BAYER-2011-033521

PATIENT
  Age: 62 Year
  Sex: Female

DRUGS (3)
  1. ALEVE (CAPLET) [Suspect]
     Indication: BACK PAIN
     Dosage: 1 DF, AFTER MEALS
     Route: 048
     Dates: start: 20110413, end: 20110413
  2. PROTONIX [Concomitant]
     Dosage: UNK
  3. ANTIHYPERTENSIVES [Concomitant]
     Dosage: UNK

REACTIONS (3)
  - FOREIGN BODY [None]
  - DYSPEPSIA [None]
  - ABDOMINAL DISCOMFORT [None]
